FAERS Safety Report 18930243 (Version 1)
Quarter: 2021Q1

REPORT INFORMATION
  Report Type: Spontaneous
  Country: US (occurrence: US)
  Receive Date: 20210223
  Receipt Date: 20210223
  Transmission Date: 20210420
  Serious: No
  Sender: FDA-Public Use
  Company Number: US-TAKEDA-2021TUS010170

PATIENT
  Sex: Female

DRUGS (1)
  1. ICLUSIG [Suspect]
     Active Substance: PONATINIB
     Indication: CHRONIC MYELOID LEUKAEMIA
     Dosage: 15 MILLIGRAM, QD
     Route: 048
     Dates: start: 20210209

REACTIONS (11)
  - Nasal disorder [Unknown]
  - Abdominal pain upper [Unknown]
  - Back pain [Unknown]
  - Eructation [Unknown]
  - Abdominal discomfort [Unknown]
  - Asthenia [Unknown]
  - Epistaxis [Unknown]
  - Breast pain [Unknown]
  - Dysphonia [Unknown]
  - Nausea [Unknown]
  - Sinus disorder [Unknown]
